FAERS Safety Report 5138080-0 (Version None)
Quarter: 2006Q4

REPORT INFORMATION
  Report Type: 
  Country: None (occurrence: None)
  Receive Date: 20061024
  Receipt Date: 20061011
  Transmission Date: 20070319
  Serious: Yes (Hospitalization, Other)
  Sender: FDA-Public Use
  Company Number: 2006127160

PATIENT
  Sex: Female
  Weight: 108.8633 kg

DRUGS (1)
  1. CELEBREX [Suspect]

REACTIONS (5)
  - CARDIAC DISORDER [None]
  - GAIT DISTURBANCE [None]
  - INSOMNIA [None]
  - POLYTRAUMATISM [None]
  - THROMBOSIS [None]
